FAERS Safety Report 8180503-7 (Version None)
Quarter: 2012Q1

REPORT INFORMATION
  Report Type: 
  Country: None (occurrence: None)
  Receive Date: 20120302
  Receipt Date: 20120228
  Transmission Date: 20120608
  Serious: Yes (Life-Threatening)
  Sender: FDA-Public Use
  Company Number: FR-B.I. PHARMACEUTICALS,INC./RIDGEFIELD-2011-FF-00285FF

PATIENT
  Sex: Male
  Weight: 130 kg

DRUGS (6)
  1. KETOPROFEN [Suspect]
     Dosage: 50 MG
     Route: 048
     Dates: start: 20110301, end: 20110305
  2. PRADAXA [Suspect]
     Dosage: 220 MG
     Route: 048
     Dates: start: 20110302, end: 20110305
  3. RASILEZ [Concomitant]
     Dosage: 150 MG
     Route: 048
  4. EUPRESSYL [Concomitant]
     Dosage: 20 MG
     Route: 048
  5. EXFORGE [Concomitant]
     Route: 048
  6. ALLOPURINOL [Concomitant]
     Dosage: 200 MG
     Route: 048

REACTIONS (4)
  - HYPOPROTHROMBINAEMIA [None]
  - HAEMATEMESIS [None]
  - RECTAL HAEMORRHAGE [None]
  - MELAENA [None]
